FAERS Safety Report 6327548-7 (Version None)
Quarter: 2009Q3

REPORT INFORMATION
  Report Type: 
  Country: None (occurrence: None)
  Receive Date: 20090825
  Receipt Date: 20090814
  Transmission Date: 20100115
  Serious: Yes (Hospitalization)
  Sender: FDA-Public Use
  Company Number: IT-ELI_LILLY_AND_COMPANY-IT200908003490

PATIENT
  Sex: Male

DRUGS (3)
  1. HUMALOG [Suspect]
     Indication: TYPE 1 DIABETES MELLITUS
     Dosage: 21 IU, DAILY (1/D)
     Route: 058
     Dates: start: 20090616
  2. LANTUS [Concomitant]
     Indication: TYPE 1 DIABETES MELLITUS
     Dosage: 14 IU, DAILY (1/D)
     Route: 058
     Dates: start: 20090616
  3. FUSIDIC ACID [Concomitant]
     Indication: ERYSIPELAS
     Route: 061
     Dates: start: 20090616, end: 20090813

REACTIONS (3)
  - FALL [None]
  - HYPOGLYCAEMIC UNCONSCIOUSNESS [None]
  - MOUTH INJURY [None]
